FAERS Safety Report 9637800 (Version 1)
Quarter: 2013Q4

REPORT INFORMATION
  Report Type: Spontaneous
  Country: FR (occurrence: None)
  Receive Date: 20131018
  Receipt Date: 20131018
  Transmission Date: 20140711
  Serious: Yes (Hospitalization)
  Sender: FDA-Public Use
  Company Number: 1914078

PATIENT
  Age: 78 Year
  Sex: Female

DRUGS (4)
  1. CARBOPLATIN [Suspect]
     Indication: OVARIAN CANCER
     Route: 041
     Dates: start: 20090507, end: 20090507
  2. ZOPHREN [Concomitant]
  3. METHYLPREDNISOLONE MERCK [Concomitant]
  4. PLITICAN [Concomitant]

REACTIONS (4)
  - Hot flush [None]
  - Pruritus [None]
  - Malignant neoplasm progression [None]
  - Hypersensitivity [None]
